FAERS Safety Report 7707068 (Version 2)
Quarter: 2015Q1

REPORT INFORMATION
  Report Type: Spontaneous
  Country: US (occurrence: US)
  Receive Date: 20101214
  Receipt Date: 20150128
  Transmission Date: 20150721
  Serious: Yes (Other)
  Sender: FDA-Public Use
  Company Number: US-ROCHE-724582

PATIENT
  Age: 15 Year
  Sex: Male
  Weight: 113.4 kg

DRUGS (4)
  1. ACCUTANE [Suspect]
     Active Substance: ISOTRETINOIN
     Dosage: 80/120 MG EVERY ALTERNATE DAY
     Route: 048
     Dates: start: 19930208, end: 199306
  2. ERYGEL [Concomitant]
     Active Substance: ERYTHROMYCIN
     Route: 065
  3. RETIN-A [Concomitant]
     Active Substance: TRETINOIN
  4. ACCUTANE [Suspect]
     Active Substance: ISOTRETINOIN
     Indication: ACNE
     Route: 048
     Dates: start: 199212, end: 19930208

REACTIONS (18)
  - Nausea [Unknown]
  - Abdominal pain [Unknown]
  - Tendonitis [Unknown]
  - Rectal haemorrhage [Unknown]
  - Retrograde ejaculation [Unknown]
  - Folliculitis [Unknown]
  - Nerve injury [Unknown]
  - Intestinal obstruction [Unknown]
  - Colitis ulcerative [Unknown]
  - Mechanical urticaria [Unknown]
  - Rectal stenosis [Unknown]
  - Sinusitis [Unknown]
  - Pancreatitis [Unknown]
  - Inflammatory bowel disease [Unknown]
  - Depression [Unknown]
  - Anal fissure [Recovered/Resolved]
  - Irritable bowel syndrome [Unknown]
  - Ileal ulcer [Recovered/Resolved]

NARRATIVE: CASE EVENT DATE: 19930309
